FAERS Safety Report 5380900-9 (Version None)
Quarter: 2007Q2

REPORT INFORMATION
  Report Type: 
  Country: None (occurrence: None)
  Receive Date: 20070530
  Receipt Date: 20070222
  Transmission Date: 20071010
  Serious: No
  Sender: FDA-Public Use
  Company Number: 2007PV030565

PATIENT
  Age: 67 Year
  Sex: Male
  Weight: 117.028 kg

DRUGS (4)
  1. BYETTA [Suspect]
     Indication: DIABETES MELLITUS NON-INSULIN-DEPENDENT
     Dosage: 5 MCG; BID; SC, 5 MCG; QD; SC
     Route: 058
     Dates: start: 20070201, end: 20070201
  2. BYETTA [Suspect]
     Indication: WEIGHT DECREASED
     Dosage: 5 MCG; BID; SC, 5 MCG; QD; SC
     Route: 058
     Dates: start: 20070201, end: 20070201
  3. BYETTA [Suspect]
     Indication: DIABETES MELLITUS NON-INSULIN-DEPENDENT
     Dosage: 5 MCG; BID; SC, 5 MCG; QD; SC
     Route: 058
     Dates: start: 20070201
  4. BYETTA [Suspect]
     Indication: WEIGHT DECREASED
     Dosage: 5 MCG; BID; SC, 5 MCG; QD; SC
     Route: 058
     Dates: start: 20070201

REACTIONS (3)
  - ABDOMINAL DISTENSION [None]
  - CHROMATURIA [None]
  - NASOPHARYNGITIS [None]
